FAERS Safety Report 7093719-8 (Version None)
Quarter: 2010Q4

REPORT INFORMATION
  Report Type: 
  Country: None (occurrence: None)
  Receive Date: 20101110
  Receipt Date: 20101103
  Transmission Date: 20110411
  Serious: Yes (Life-Threatening, Hospitalization)
  Sender: FDA-Public Use
  Company Number: CA-BAYER-201039913NA

PATIENT
  Age: 25 Year
  Sex: Female
  Weight: 54 kg

DRUGS (3)
  1. YASMIN [Suspect]
     Indication: PRODUCT USED FOR UNKNOWN INDICATION
     Route: 048
  2. ACETAMINOPHEN [Concomitant]
     Route: 048
  3. NEOCITRAN [Concomitant]

REACTIONS (5)
  - CHEST PAIN [None]
  - DYSPNOEA [None]
  - HAEMOPTYSIS [None]
  - PLEURAL EFFUSION [None]
  - PULMONARY EMBOLISM [None]
